FAERS Safety Report 20823868 (Version 3)
Quarter: 2022Q2

REPORT INFORMATION
  Report Type: Report from Study
  Country: US (occurrence: US)
  Receive Date: 20220513
  Receipt Date: 20220603
  Transmission Date: 20220721
  Serious: Yes (Hospitalization)
  Sender: FDA-Public Use
  Company Number: US-NOVARTISPH-NVSC2022US106466

PATIENT
  Sex: Female

DRUGS (1)
  1. COSENTYX [Suspect]
     Active Substance: SECUKINUMAB
     Indication: Product used for unknown indication
     Dosage: UNK
     Route: 065

REACTIONS (9)
  - Psoriatic arthropathy [Unknown]
  - Diverticulitis [Unknown]
  - Amnesia [Unknown]
  - Arthritis [Unknown]
  - Arthropathy [Unknown]
  - Product dose omission issue [Unknown]
  - Urinary tract infection [Unknown]
  - Somnolence [Unknown]
  - Pain [Unknown]
